FAERS Safety Report 20873142 (Version 2)
Quarter: 2022Q2

REPORT INFORMATION
  Report Type: Spontaneous
  Country: US (occurrence: US)
  Receive Date: 20220525
  Receipt Date: 20220527
  Transmission Date: 20220720
  Serious: Yes (Hospitalization, Other)
  Sender: FDA-Public Use
  Company Number: US-PFIZER INC-202200725713

PATIENT
  Age: 56 Year
  Sex: Male

DRUGS (11)
  1. SULFAMETHOXAZOLE\TRIMETHOPRIM [Suspect]
     Active Substance: SULFAMETHOXAZOLE\TRIMETHOPRIM
     Indication: Mycobacterium chelonae infection
     Dosage: UNK
     Route: 048
     Dates: start: 20200123
  2. AZITHROMYCIN [Concomitant]
     Active Substance: AZITHROMYCIN
     Indication: Mycobacterium chelonae infection
     Dosage: UNK
     Route: 048
     Dates: start: 20200123
  3. TEDIZOLID [Concomitant]
     Active Substance: TEDIZOLID
     Indication: Mycobacterium chelonae infection
     Dosage: UNK
     Dates: start: 2020
  4. OMADACYCLINE [Concomitant]
     Active Substance: OMADACYCLINE
     Indication: Mycobacterium chelonae infection
     Dosage: UNK
     Dates: start: 2020, end: 202102
  5. CLOFAZIMINE [Concomitant]
     Active Substance: CLOFAZIMINE
     Indication: Mycobacterium chelonae infection
     Dosage: UNK
     Dates: start: 2020, end: 202102
  6. BEDAQUILINE [Concomitant]
     Active Substance: BEDAQUILINE
     Indication: Mycobacterium chelonae infection
     Dosage: UNK
     Dates: start: 2020, end: 202102
  7. IMIPENEM [Concomitant]
     Active Substance: IMIPENEM
     Indication: Mycobacterium chelonae infection
     Dosage: UNK
     Dates: start: 2020
  8. MEROPENEM/VABORBACTAM [Concomitant]
     Indication: Mycobacterium chelonae infection
     Dosage: UNK
     Dates: start: 2020
  9. PREDNISONE [Concomitant]
     Active Substance: PREDNISONE
     Dosage: UP TO 40 MG PER DAY.
  10. PREDNISONE [Concomitant]
     Active Substance: PREDNISONE
     Dosage: 10 MG, DAILY
     Route: 048
  11. TOBRAMYCIN [Concomitant]
     Active Substance: TOBRAMYCIN
     Indication: Mycobacterium chelonae infection
     Dosage: UNK
     Route: 042
     Dates: start: 20200123

REACTIONS (2)
  - Gastrointestinal disorder [Unknown]
  - Off label use [Unknown]

NARRATIVE: CASE EVENT DATE: 20200101
